FAERS Safety Report 4329191-8 (Version None)
Quarter: 2004Q1

REPORT INFORMATION
  Report Type: 
  Country: None (occurrence: None)
  Receive Date: 20040329
  Receipt Date: 20031229
  Transmission Date: 20041129
  Serious: No
  Sender: FDA-Public Use
  Company Number: 03P-163-0245819-00

PATIENT
  Age: 68 Year
  Sex: Male
  Weight: 111.1313 kg

DRUGS (19)
  1. HUMIRA [Suspect]
     Indication: RHEUMATOID ARTHRITIS
     Dosage: 40 MG, 1IN 2 WK, SUBCUTANEOUS
     Route: 058
     Dates: start: 20030301
  2. SULFASALAZINE [Concomitant]
  3. CELECOXIB [Concomitant]
  4. COUMADIN [Concomitant]
  5. ROSIGLITAZONE MALEATE [Concomitant]
  6. GEZOR [Concomitant]
  7. COLCHICINE [Concomitant]
  8. CLONIDINE [Concomitant]
  9. COMBIVENT [Concomitant]
  10. DIGOXIN [Concomitant]
  11. TERAZOSIN HYDROCHLORIDE [Concomitant]
  12. FUROSEMIDE [Concomitant]
  13. ATORVASTATIN [Concomitant]
  14. POTASSIUM [Concomitant]
  15. T-3SR [Concomitant]
  16. VERAPAMIL [Concomitant]
  17. ASPIRIN [Concomitant]
  18. GLIMEPIRIDE [Concomitant]
  19. GLUCOPHAGE XR [Concomitant]

REACTIONS (1)
  - DRUG INEFFECTIVE [None]
